FAERS Safety Report 4273854-X (Version None)
Quarter: 2004Q1

REPORT INFORMATION
  Report Type: 
  Country: None (occurrence: None)
  Receive Date: 20040114
  Receipt Date: 20040105
  Transmission Date: 20041129
  Serious: Yes (Other)
  Sender: FDA-Public Use
  Company Number: 200410009GDS

PATIENT
  Age: 75 Year
  Sex: Male

DRUGS (7)
  1. ASPIRIN [Suspect]
     Indication: CEREBROVASCULAR ACCIDENT PROPHYLAXIS
     Dosage: 75 MG, TOTAL DAILY, ORAL
     Route: 048
     Dates: start: 20031208, end: 20031216
  2. CLOPIDOGREL [Suspect]
     Indication: CEREBROVASCULAR ACCIDENT PROPHYLAXIS
     Dosage: 75 MG, TOTAL DAILY, ORAL
     Route: 048
     Dates: start: 20031208, end: 20031216
  3. METFORMIN HCL [Concomitant]
  4. AVANDIA [Concomitant]
  5. GLICLAZIDE [Concomitant]
  6. ALTACE [Concomitant]
  7. ISOSORBIDE [Concomitant]

REACTIONS (2)
  - ANGIONEUROTIC OEDEMA [None]
  - HYPERSENSITIVITY [None]
